FAERS Safety Report 23643670 (Version 2)
Quarter: 2024Q3

REPORT INFORMATION
  Report Type: Spontaneous
  Country: US (occurrence: US)
  Receive Date: 20240318
  Receipt Date: 20240919
  Transmission Date: 20241017
  Serious: No
  Sender: FERRING
  Company Number: US-FERRINGPH-2024FE01034

PATIENT
  Age: 34 Year
  Sex: Female
  Weight: 45.351 kg

DRUGS (3)
  1. REBYOTA [Suspect]
     Active Substance: DONOR HUMAN STOOL
     Indication: Clostridium difficile colitis
     Dosage: 150 ML, ONCE/SINGLE
     Route: 054
     Dates: start: 20240217, end: 20240217
  2. REBYOTA [Suspect]
     Active Substance: DONOR HUMAN STOOL
     Dosage: UNK, ONCE/SINGLE
     Route: 065
     Dates: start: 20240223, end: 20240223
  3. REBYOTA [Suspect]
     Active Substance: DONOR HUMAN STOOL
     Dosage: 150 ML, ONCE/SINGLE
     Route: 054
     Dates: start: 20240216, end: 20240216

REACTIONS (4)
  - Pyrexia [Not Recovered/Not Resolved]
  - Diarrhoea [Not Recovered/Not Resolved]
  - Clostridium difficile infection [Not Recovered/Not Resolved]
  - Clostridium test positive [Not Recovered/Not Resolved]

NARRATIVE: CASE EVENT DATE: 20240227
